FAERS Safety Report 8107266-5 (Version None)
Quarter: 2012Q1

REPORT INFORMATION
  Report Type: 
  Country: None (occurrence: None)
  Receive Date: 20120202
  Receipt Date: 20120130
  Transmission Date: 20120608
  Serious: Yes (Other)
  Sender: FDA-Public Use
  Company Number: US-PFIZER INC-2012027913

PATIENT
  Sex: Male

DRUGS (1)
  1. XANAX [Suspect]
     Indication: ANXIETY DISORDER
     Dosage: UNK

REACTIONS (3)
  - ANXIETY DISORDER [None]
  - ARTHROPATHY [None]
  - GAIT DISTURBANCE [None]
